FAERS Safety Report 7963504-0 (Version None)
Quarter: 2011Q4

REPORT INFORMATION
  Report Type: 
  Country: None (occurrence: None)
  Receive Date: 20111208
  Receipt Date: 20111026
  Transmission Date: 20120403
  Serious: No
  Sender: FDA-Public Use
  Company Number: US-BAYER-2011-104878

PATIENT
  Age: 93 Year
  Sex: Female
  Weight: 59 kg

DRUGS (4)
  1. VITAMIN D [Concomitant]
  2. CHOLESTEROL- AND TRIGLYCERIDE REDUCERS [Concomitant]
  3. ALEVE (CAPLET) [Suspect]
     Indication: BACK PAIN
     Dosage: 1 TAB QD
     Route: 048
     Dates: start: 20111001
  4. THYROID THERAPY [Concomitant]

REACTIONS (3)
  - GASTROOESOPHAGEAL REFLUX DISEASE [None]
  - NO ADVERSE EVENT [None]
  - DYSPEPSIA [None]
